FAERS Safety Report 9632392 (Version 1)
Quarter: 2013Q4

REPORT INFORMATION
  Report Type: Spontaneous
  Country: GB (occurrence: None)
  Receive Date: 20131016
  Receipt Date: 20131016
  Transmission Date: 20140711
  Serious: Yes (Other)
  Sender: FDA-Public Use
  Company Number: VAL_02767_2013

PATIENT
  Age: 75 Year
  Sex: Male

DRUGS (3)
  1. METOPROLOL [Suspect]
     Indication: ATRIAL FIBRILLATION
     Route: 048
     Dates: start: 20130318
  2. PRADAXA [Suspect]
     Indication: PRODUCT USED FOR UNKNOWN INDICATION
     Dosage: 1 WEEK UNTIL UNKNOWN
  3. CETRABEN [Concomitant]

REACTIONS (4)
  - Atrial fibrillation [None]
  - Dizziness [None]
  - Gait disturbance [None]
  - Heart rate irregular [None]
